FAERS Safety Report 6526016-7 (Version None)
Quarter: 2010Q1

REPORT INFORMATION
  Report Type: 
  Country: None (occurrence: None)
  Receive Date: 20100104
  Receipt Date: 20091221
  Transmission Date: 20100710
  Serious: Yes (Hospitalization)
  Sender: FDA-Public Use
  Company Number: DE-MYLANLABS-2009S1021659

PATIENT
  Age: 51 Year
  Sex: Male

DRUGS (1)
  1. BACLOFEN [Suspect]
     Dosage: OVERDOSE OF 0.06 MG/KG
     Route: 037

REACTIONS (8)
  - DEPRESSED LEVEL OF CONSCIOUSNESS [None]
  - DYSPNOEA [None]
  - FLUSHING [None]
  - HALLUCINATION [None]
  - HYPOTENSION [None]
  - MEDICATION ERROR [None]
  - OVERDOSE [None]
  - SINUS BRADYCARDIA [None]
